FAERS Safety Report 18526357 (Version 1)
Quarter: 2020Q4

REPORT INFORMATION
  Report Type: Spontaneous
  Country: FR (occurrence: FR)
  Receive Date: 20201120
  Receipt Date: 20201120
  Transmission Date: 20210114
  Serious: Yes (Other)
  Sender: FDA-Public Use
  Company Number: FR-ACCORD-208551

PATIENT
  Age: 82 Year
  Sex: Female
  Weight: 65 kg

DRUGS (12)
  1. TELMISARTAN. [Concomitant]
     Active Substance: TELMISARTAN
  2. ATENOLOL/ATENOLOL HYDROCHLORIDE [Concomitant]
     Active Substance: ATENOLOL HYDROCHLORIDE
  3. CORDARONE [Suspect]
     Active Substance: AMIODARONE HYDROCHLORIDE
     Indication: ATRIAL FIBRILLATION
     Route: 048
  4. MIRTAZAPINE. [Concomitant]
     Active Substance: MIRTAZAPINE
  5. FUROSEMIDE. [Suspect]
     Active Substance: FUROSEMIDE
     Indication: PRODUCT USED FOR UNKNOWN INDICATION
  6. CALCIUM CARBONATE. [Concomitant]
     Active Substance: CALCIUM CARBONATE
  7. ALLOPURINOL. [Concomitant]
     Active Substance: ALLOPURINOL
  8. LEVOTHYROXINE. [Concomitant]
     Active Substance: LEVOTHYROXINE
  9. ETIFOXINE [Concomitant]
     Active Substance: ETIFOXINE
  10. SIMVASTATIN. [Concomitant]
     Active Substance: SIMVASTATIN
  11. AMIODARONE [Concomitant]
     Active Substance: AMIODARONE
  12. APIXABAN [Concomitant]
     Active Substance: APIXABAN

REACTIONS (1)
  - Hypothyroidism [Not Recovered/Not Resolved]
